FAERS Safety Report 9710890 (Version 2)
Quarter: 2013Q4

REPORT INFORMATION
  Report Type: Spontaneous
  Country: US (occurrence: US)
  Receive Date: 20131126
  Receipt Date: 20131126
  Transmission Date: 20140711
  Serious: No
  Sender: FDA-Public Use
  Company Number: US201210000285

PATIENT
  Age: 66 Year
  Sex: Female

DRUGS (3)
  1. BYDUREON [Suspect]
     Route: 058
     Dates: start: 20120905
  2. NOVOLIN 70/30 [Concomitant]
  3. NOVOLIN R [Concomitant]

REACTIONS (4)
  - Blood glucose increased [Not Recovered/Not Resolved]
  - Nausea [Not Recovered/Not Resolved]
  - Vomiting [Not Recovered/Not Resolved]
  - Off label use [Not Recovered/Not Resolved]
